FAERS Safety Report 15226420 (Version 1)
Quarter: 2018Q3

REPORT INFORMATION
  Report Type: Spontaneous
  Country: US (occurrence: US)
  Receive Date: 20180801
  Receipt Date: 20180801
  Transmission Date: 20181010
  Serious: Yes (Life-Threatening)
  Sender: FDA-Public Use
  Company Number: US-ASTRAZENECA-2018SE96758

PATIENT
  Age: 536 Month
  Sex: Female
  Weight: 99.8 kg

DRUGS (8)
  1. KLONIPIN [Concomitant]
     Active Substance: CLONAZEPAM
     Indication: ANXIETY DISORDER
     Dosage: 0.5MG AS REQUIRED
     Route: 048
  2. BRILINTA [Suspect]
     Active Substance: TICAGRELOR
     Indication: MYOCARDIAL INFARCTION
     Route: 048
     Dates: start: 20180218
  3. TRAMADOL. [Concomitant]
     Active Substance: TRAMADOL
     Indication: JOINT INJURY
     Dosage: 50.0MG AS REQUIRED
     Route: 048
  4. KLONIPIN [Concomitant]
     Active Substance: CLONAZEPAM
     Indication: PANIC DISORDER
     Dosage: 0.5MG AS REQUIRED
     Route: 048
  5. LOSARTAN POTASSIUM. [Concomitant]
     Active Substance: LOSARTAN POTASSIUM
     Indication: BLOOD PRESSURE ABNORMAL
     Route: 048
     Dates: end: 20180218
  6. ATORVASTATIN [Concomitant]
     Active Substance: ATORVASTATIN
     Indication: BLOOD CHOLESTEROL ABNORMAL
     Route: 048
     Dates: start: 20180218
  7. VITAMIN B?12 CYANOCOBALAMIN [Concomitant]
     Indication: VITAMIN B COMPLEX DEFICIENCY
     Route: 030
     Dates: start: 201611
  8. LOSARTAN POTASSIUM. [Concomitant]
     Active Substance: LOSARTAN POTASSIUM
     Indication: BLOOD PRESSURE ABNORMAL
     Route: 048
     Dates: start: 20180218

REACTIONS (7)
  - Loss of consciousness [Recovered/Resolved]
  - Cardiac arrest [Recovered/Resolved]
  - Limb injury [Recovering/Resolving]
  - Contusion [Not Recovered/Not Resolved]
  - Heart rate decreased [Recovered/Resolved]
  - Dizziness [Not Recovered/Not Resolved]
  - Off label use [Not Recovered/Not Resolved]

NARRATIVE: CASE EVENT DATE: 201802
